FAERS Safety Report 17335728 (Version 1)
Quarter: 2020Q1

REPORT INFORMATION
  Report Type: Spontaneous
  Country: DE (occurrence: DE)
  Receive Date: 20200128
  Receipt Date: 20200128
  Transmission Date: 20200409
  Serious: Yes (Death, Life-Threatening, Hospitalization, Other)
  Sender: FDA-Public Use
  Company Number: DE-STRIDES ARCOLAB LIMITED-2020SP000646

PATIENT
  Age: 44 Year
  Sex: Female

DRUGS (9)
  1. PREDNISOLONE. [Suspect]
     Active Substance: PREDNISOLONE
     Indication: LIVER TRANSPLANT
     Dosage: 500 MILLIGRAM
     Route: 065
     Dates: start: 2015
  2. BASILIXIMAB [Suspect]
     Active Substance: BASILIXIMAB
     Indication: LIVER TRANSPLANT
     Dosage: 20 MILLIGRAM, POD 0 AND 4, INDUCTION
     Route: 042
     Dates: start: 2015
  3. TACROLIMUS. [Suspect]
     Active Substance: TACROLIMUS
     Indication: IMMUNOSUPPRESSANT DRUG THERAPY
     Dosage: UNK, OVERDOSE
     Route: 065
     Dates: start: 2015
  4. BASILIXIMAB [Suspect]
     Active Substance: BASILIXIMAB
     Indication: IMMUNOSUPPRESSANT DRUG THERAPY
  5. HYDROCORTISONE. [Suspect]
     Active Substance: HYDROCORTISONE
     Indication: LIVER TRANSPLANT
     Dosage: UNK
     Route: 041
     Dates: start: 2015
  6. PREDNISOLONE. [Suspect]
     Active Substance: PREDNISOLONE
     Dosage: UNK, TAPER SCHEDULE (STARTING DOSAGE OF 20 MG)
     Route: 065
     Dates: start: 2015
  7. HYDROCORTISONE. [Suspect]
     Active Substance: HYDROCORTISONE
     Indication: IMMUNOSUPPRESSANT DRUG THERAPY
  8. TACROLIMUS. [Suspect]
     Active Substance: TACROLIMUS
     Indication: LIVER TRANSPLANT
     Dosage: UNK, LOW DOSE, TROUGH LEVEL IN THE RANGE OF 4?6 NG/ML
     Route: 065
     Dates: start: 2015
  9. PREDNISOLONE. [Suspect]
     Active Substance: PREDNISOLONE
     Indication: IMMUNOSUPPRESSANT DRUG THERAPY
     Dosage: 20 MILLIGRAM, LOW DOSE, TAPER SCHEDULE
     Route: 065
     Dates: start: 2015

REACTIONS (21)
  - Cytomegalovirus infection [Recovered/Resolved]
  - Aspergillus infection [Unknown]
  - Dehydration [Unknown]
  - Visual impairment [Recovered/Resolved]
  - Cerebral aspergillosis [Fatal]
  - Overdose [Unknown]
  - Brain abscess [Not Recovered/Not Resolved]
  - Arterial thrombosis [Fatal]
  - Haemorrhage [Unknown]
  - Gastroenteritis [Unknown]
  - Partial seizures [Unknown]
  - Liver transplant rejection [Unknown]
  - Bronchopulmonary aspergillosis [Fatal]
  - Temperature difference of extremities [Unknown]
  - Hyperkalaemia [Unknown]
  - Acute kidney injury [Unknown]
  - Somnolence [Unknown]
  - Eye infection fungal [Recovered/Resolved]
  - Septic encephalopathy [Fatal]
  - Enterococcal infection [Unknown]
  - Pneumonia [Unknown]

NARRATIVE: CASE EVENT DATE: 2015
